FAERS Safety Report 8351274-6 (Version None)
Quarter: 2012Q2

REPORT INFORMATION
  Report Type: 
  Country: None (occurrence: None)
  Receive Date: 20120510
  Receipt Date: 20110912
  Transmission Date: 20120825
  Serious: No
  Sender: FDA-Public Use
  Company Number: US-TEVA-2011004860

PATIENT
  Sex: Female
  Weight: 63.56 kg

DRUGS (5)
  1. SEASONIQUE [Concomitant]
     Dates: start: 20070101
  2. NUVIGIL [Suspect]
     Indication: NARCOLEPSY
     Route: 048
     Dates: start: 20110901, end: 20110901
  3. LAMICTAL [Concomitant]
     Dates: start: 20100101
  4. NUVIGIL [Suspect]
     Route: 048
     Dates: start: 20110901, end: 20110901
  5. PROZAC [Concomitant]
     Dates: start: 20090101

REACTIONS (2)
  - NAUSEA [None]
  - VOMITING [None]
